FAERS Safety Report 6088543-9 (Version None)
Quarter: 2009Q1

REPORT INFORMATION
  Report Type: 
  Country: None (occurrence: None)
  Receive Date: 20090224
  Receipt Date: 20090213
  Transmission Date: 20090719
  Serious: Yes (Other)
  Sender: FDA-Public Use
  Company Number: CA-BAYER-200913288NA

PATIENT
  Age: 69 Year
  Sex: Male

DRUGS (8)
  1. CIPRO [Suspect]
     Indication: SEPSIS
     Dates: start: 20081221
  2. CLOZARIL [Interacting]
     Indication: SCHIZOAFFECTIVE DISORDER
  3. COLCHICINE [Concomitant]
     Indication: GOUT
  4. ALLOPURINOL [Concomitant]
     Indication: GOUT
  5. GLUCOPHAGE [Concomitant]
     Indication: DIABETES MELLITUS
  6. SYNTHROID [Concomitant]
     Indication: HYPERTHYROIDISM
  7. LITHIUM [Concomitant]
     Indication: SCHIZOAFFECTIVE DISORDER
  8. EPIVAL [Concomitant]
     Dosage: TOTAL DAILY DOSE: 1500 MG  UNIT DOSE: 500 MG

REACTIONS (3)
  - ATONIC URINARY BLADDER [None]
  - NEUTROPENIA [None]
  - URINARY RETENTION [None]
